FAERS Safety Report 6610941-2 (Version None)
Quarter: 2010Q1

REPORT INFORMATION
  Report Type: 
  Country: None (occurrence: None)
  Receive Date: 20100222
  Receipt Date: 20100211
  Transmission Date: 20100710
  Serious: Yes (Death, Life-Threatening)
  Sender: FDA-Public Use
  Company Number: 8041374

PATIENT
  Sex: Female

DRUGS (11)
  1. KEPPRA [Suspect]
     Indication: EPILEPSY
     Dosage: 0-0-1 1-0-1 ORAL
     Route: 048
     Dates: start: 20060929, end: 20061003
  2. CETIRIZINE HCL [Suspect]
     Indication: PRURITUS
     Dosage: 1 DF QD, 0-1-0 ORAL
     Route: 048
     Dates: start: 20061003, end: 20061004
  3. GLIBENCLAMIDE [Suspect]
     Indication: DIABETES MELLITUS
     Dosage: 3.5 MG QD, 1-0-0 ORAL
     Route: 048
     Dates: start: 20060816, end: 20061004
  4. RAMIPRIL [Suspect]
     Indication: HYPERTENSION
     Dosage: 5 MG BID, 1-0-1- ORAL
     Route: 048
     Dates: start: 20060815, end: 20061004
  5. DEXAMETHASONE [Suspect]
     Indication: PROPHYLAXIS
     Dosage: 1-0-0 1-0-1 ORAL, ORAL
     Route: 048
     Dates: start: 20060815, end: 20060927
  6. DEXAMETHASONE [Suspect]
     Indication: PROPHYLAXIS
     Dosage: 1-0-0 1-0-1 ORAL, ORAL
     Route: 048
     Dates: start: 20060929, end: 20061004
  7. PANTOPRAZOLE SODIUM [Suspect]
     Indication: PROPHYLAXIS
     Dosage: ORAL
     Route: 048
     Dates: start: 20060815, end: 20061004
  8. EXELON [Suspect]
     Indication: DEMENTIA ALZHEIMER'S TYPE
     Dosage: 4.5 MG BID, 1-0-1 ORAL
     Route: 048
     Dates: start: 20050914, end: 20061004
  9. ENOXAPARIN SODIUM [Suspect]
     Indication: PROPHYLAXIS
     Dosage: 1 DF, QD, 1-0-0 ORAL SUBCUTANEOUS
     Route: 058
     Dates: start: 20060929, end: 20061004
  10. PROMETHAZINE [Suspect]
     Indication: RESTLESSNESS
     Dosage: 5 DF, QD, 0-0-5 ORAL
     Route: 048
     Dates: start: 20061003, end: 20061003
  11. ERGENYL CHRONO [Suspect]
     Indication: EPILEPSY
     Dosage: 0-0-1 1-0-1 1-0-5/3 ORAL
     Route: 048
     Dates: start: 20061002, end: 20061004

REACTIONS (3)
  - MULTI-ORGAN FAILURE [None]
  - STEVENS-JOHNSON SYNDROME [None]
  - TOXIC EPIDERMAL NECROLYSIS [None]
